FAERS Safety Report 5694097-9 (Version None)
Quarter: 2008Q2

REPORT INFORMATION
  Report Type: 
  Country: None (occurrence: None)
  Receive Date: 20080402
  Receipt Date: 20080305
  Transmission Date: 20081010
  Serious: Yes (Other)
  Sender: FDA-Public Use
  Company Number: IMP_03534_2008

PATIENT
  Sex: Female
  Weight: 53.0709 kg

DRUGS (6)
  1. CLARITIN-D [Suspect]
     Indication: EAR DISORDER
     Dosage: (1 TABLET EVERY 12 HOURS)
     Dates: start: 20080125, end: 20080305
  2. CLARITIN-D [Suspect]
     Indication: SINUSITIS
     Dosage: (1 TABLET EVERY 12 HOURS)
     Dates: start: 20080125, end: 20080305
  3. GABAPENTIN [Concomitant]
  4. TRAMADOL HCL [Concomitant]
  5. VALTREX [Concomitant]
  6. XANAX [Concomitant]

REACTIONS (28)
  - ANGER [None]
  - ANXIETY [None]
  - BLOOD IRON INCREASED [None]
  - BLOOD PRESSURE FLUCTUATION [None]
  - BLOOD PRESSURE INCREASED [None]
  - CHEST PAIN [None]
  - DEHYDRATION [None]
  - DIARRHOEA [None]
  - DIZZINESS [None]
  - DRUG WITHDRAWAL SYNDROME [None]
  - DRY MOUTH [None]
  - DYSKINESIA [None]
  - DYSPNOEA [None]
  - EAR CONGESTION [None]
  - FEELING ABNORMAL [None]
  - HEAD TITUBATION [None]
  - HEADACHE [None]
  - HEART RATE INCREASED [None]
  - HYPOAESTHESIA [None]
  - INSOMNIA [None]
  - IRRITABILITY [None]
  - MENTAL DISORDER [None]
  - NERVOUSNESS [None]
  - PALPITATIONS [None]
  - SYNCOPE [None]
  - THYROXINE ABNORMAL [None]
  - TINNITUS [None]
  - TREMOR [None]
